FAERS Safety Report 11770436 (Version 2)
Quarter: 2015Q4

REPORT INFORMATION
  Report Type: Spontaneous
  Country: US (occurrence: US)
  Receive Date: 20151123
  Receipt Date: 20151123
  Transmission Date: 20160304
  Serious: No
  Sender: FDA-Public Use
  Company Number: US-PERRIGO-15US007252

PATIENT
  Age: 82 Year
  Sex: Male
  Weight: 79.37 kg

DRUGS (2)
  1. POLYETHYLENE GLYCOL 3350. [Suspect]
     Active Substance: POLYETHYLENE GLYCOL 3350
     Dosage: 17 G, SINGLE
     Route: 048
     Dates: start: 20150711, end: 20150711
  2. POLYETHYLENE GLYCOL 3350. [Suspect]
     Active Substance: POLYETHYLENE GLYCOL 3350
     Indication: CONSTIPATION
     Dosage: 17 G, SINGLE
     Route: 048
     Dates: start: 201506, end: 201506

REACTIONS (6)
  - Adverse event [Recovered/Resolved]
  - Delirium [Recovered/Resolved]
  - Logorrhoea [Recovered/Resolved]
  - Thinking abnormal [Recovered/Resolved]
  - Dysuria [Not Recovered/Not Resolved]
  - Urine output increased [Recovered/Resolved]

NARRATIVE: CASE EVENT DATE: 201506
